FAERS Safety Report 6266781-X (Version None)
Quarter: 2009Q3

REPORT INFORMATION
  Report Type: 
  Country: None (occurrence: None)
  Receive Date: 20090709
  Receipt Date: 20090709
  Transmission Date: 20100115
  Serious: No
  Sender: FDA-Public Use
  Company Number: None

PATIENT
  Sex: Female
  Weight: 59.8748 kg

DRUGS (1)
  1. AMPHETAMINE SALTS 30MG [Suspect]
     Indication: ATTENTION DEFICIT/HYPERACTIVITY DISORDER
     Dosage: 1 TABLET EVERY MORNING
     Dates: start: 20040101, end: 20070101

REACTIONS (2)
  - DYSKINESIA [None]
  - TEMPOROMANDIBULAR JOINT SYNDROME [None]
